FAERS Safety Report 23582755 (Version 1)
Quarter: 2024Q1

REPORT INFORMATION
  Report Type: Report from Study
  Country: KR (occurrence: KR)
  Receive Date: 20240229
  Receipt Date: 20240229
  Transmission Date: 20240410
  Serious: Yes (Hospitalization, Other)
  Sender: FDA-Public Use
  Company Number: KR-AstraZeneca-2024A041395

PATIENT
  Age: 83 Year
  Sex: Male
  Weight: 64 kg

DRUGS (47)
  1. CANDESARTAN [Suspect]
     Active Substance: CANDESARTAN
     Indication: Hypertension
     Dosage: 8 MILLIGRAM
     Route: 048
     Dates: end: 20221221
  2. ACETAMINOPHEN [Suspect]
     Active Substance: ACETAMINOPHEN
     Indication: Premedication
     Dosage: 650 MILLIGRAM
     Route: 065
     Dates: start: 20221212, end: 20221212
  3. CARVEDILOL [Suspect]
     Active Substance: CARVEDILOL
     Indication: Hypertension
     Dosage: 25 MILLIGRAM
     Route: 065
     Dates: start: 20221222
  4. ATORVASTATIN CALCIUM [Suspect]
     Active Substance: ATORVASTATIN CALCIUM
     Indication: Hyperlipidaemia
     Dosage: 10 MILLIGRAM
     Route: 065
  5. PIPERACILLIN AND TAZOBACTAM [Suspect]
     Active Substance: PIPERACILLIN SODIUM\TAZOBACTAM SODIUM
     Indication: Pyrexia
     Dosage: 4.5 GRAM
     Route: 065
     Dates: start: 20221223, end: 20221225
  6. MORPHINE HYDROCHLORIDE [Suspect]
     Active Substance: MORPHINE HYDROCHLORIDE
     Indication: Cancer pain
     Dosage: 5 MILLIGRAM
     Route: 065
     Dates: start: 20221212, end: 20221219
  7. NEXIUM [Suspect]
     Active Substance: ESOMEPRAZOLE MAGNESIUM
     Indication: Prophylaxis
     Dosage: 20 MILLIGRAM
     Route: 048
     Dates: start: 2022
  8. LACTULOSE [Suspect]
     Active Substance: LACTULOSE
     Indication: Constipation prophylaxis
     Dosage: 15 MILLILITER
     Route: 065
     Dates: start: 20221124
  9. ALPRAZOLAM [Suspect]
     Active Substance: ALPRAZOLAM
     Indication: Depression
     Route: 065
  10. ALPRAZOLAM [Suspect]
     Active Substance: ALPRAZOLAM
     Indication: Depression
     Dosage: 0.125 MILLIGRAM
     Route: 048
     Dates: start: 20230102
  11. NIFEDIPINE [Suspect]
     Active Substance: NIFEDIPINE
     Indication: Hypertension
     Dosage: 30 MILLIGRAM
     Route: 065
     Dates: start: 20221217
  12. PALONOSETRON HYDROCHLORIDE [Suspect]
     Active Substance: PALONOSETRON HYDROCHLORIDE
     Indication: Prophylaxis
     Dosage: 0.25 MILLIGRAM
     Route: 065
     Dates: start: 20221212, end: 20221212
  13. PALONOSETRON HYDROCHLORIDE [Suspect]
     Active Substance: PALONOSETRON HYDROCHLORIDE
     Indication: Prophylaxis
     Dosage: 0.25 MILLIGRAM
     Route: 065
     Dates: start: 20221227, end: 20221227
  14. CHLORPHENIRAMINE MALEATE [Suspect]
     Active Substance: CHLORPHENIRAMINE MALEATE
     Indication: Prophylaxis
     Dosage: 4 MILLIGRAM
     Route: 065
     Dates: start: 20221227, end: 20221227
  15. CHLORPHENIRAMINE MALEATE [Suspect]
     Active Substance: CHLORPHENIRAMINE MALEATE
     Indication: Prophylaxis
     Dosage: 4 MILLIGRAM
     Route: 065
     Dates: start: 20221212, end: 20221212
  16. DUTASTERIDE [Suspect]
     Active Substance: DUTASTERIDE
     Indication: Benign prostatic hyperplasia
     Dosage: 0.5 MILLIGRAM
     Route: 065
     Dates: start: 20221215
  17. DUTASTERIDE [Suspect]
     Active Substance: DUTASTERIDE
     Indication: Benign prostatic hyperplasia
     Dosage: 0.5 MILLIGRAM
     Route: 065
     Dates: end: 20221214
  18. FENTANYL [Suspect]
     Active Substance: FENTANYL\FENTANYL CITRATE
     Indication: Prophylaxis
     Route: 065
  19. FENTANYL [Suspect]
     Active Substance: FENTANYL\FENTANYL CITRATE
     Indication: Prophylaxis
     Dosage: 1200 MICROGRAM
     Route: 062
     Dates: start: 20230107
  20. OXALIPLATIN [Suspect]
     Active Substance: OXALIPLATIN
     Indication: Colon cancer
     Dosage: 104 MILLIGRAM
     Route: 065
     Dates: start: 20221212, end: 20221212
  21. OXALIPLATIN [Suspect]
     Active Substance: OXALIPLATIN
     Indication: Colon cancer
     Dosage: 75 MILLIGRAM
     Route: 065
     Dates: start: 20221227, end: 20221227
  22. MORPHINE SULFATE [Suspect]
     Active Substance: MORPHINE SULFATE
     Indication: Cancer pain
     Dosage: 10 MILLIGRAM, PRN
     Route: 065
     Dates: start: 20221220
  23. LIMAPROST [Suspect]
     Active Substance: LIMAPROST
     Indication: Hypertension
     Dosage: 5 MICROGRAM
     Route: 065
     Dates: end: 20221229
  24. METOCLOPRAMIDE HYDROCHLORIDE [Suspect]
     Active Substance: METOCLOPRAMIDE HYDROCHLORIDE
     Indication: Prophylaxis
     Dosage: 10 MILLIGRAM
     Route: 065
     Dates: start: 20221212, end: 20221215
  25. METOCLOPRAMIDE HYDROCHLORIDE [Suspect]
     Active Substance: METOCLOPRAMIDE HYDROCHLORIDE
     Indication: Prophylaxis
     Dosage: 10 MILLIGRAM
     Route: 065
     Dates: start: 20221227, end: 20221227
  26. ZOLEDRONIC ACID [Suspect]
     Active Substance: ZOLEDRONIC ACID
     Indication: Colon cancer
     Dosage: 4 MILLIGRAM
     Route: 065
     Dates: start: 20221222, end: 20221222
  27. MINOXIDIL [Suspect]
     Active Substance: MINOXIDIL
     Indication: Hypertension
     Dosage: 5 MILLIGRAM
     Route: 065
     Dates: start: 20221219
  28. METFORMIN HYDROCHLORIDE [Suspect]
     Active Substance: METFORMIN HYDROCHLORIDE
     Indication: Hypertension
     Dosage: 500 MILLIGRAM
     Route: 065
  29. METFORMIN HYDROCHLORIDE [Suspect]
     Active Substance: METFORMIN HYDROCHLORIDE
     Indication: Hypertension
     Route: 065
  30. CIMETIDINE [Suspect]
     Active Substance: CIMETIDINE
     Indication: Prophylaxis
     Dosage: 200 MILLIGRAM
     Route: 065
     Dates: start: 2022
  31. LEUCOVORIN CALCIUM [Suspect]
     Active Substance: LEUCOVORIN CALCIUM
     Indication: Colon cancer
     Dosage: 490 MILLIGRAM
     Route: 065
     Dates: start: 20221212, end: 20221212
  32. LEUCOVORIN CALCIUM [Suspect]
     Active Substance: LEUCOVORIN CALCIUM
     Indication: Colon cancer
     Dosage: 354 MILLIGRAM
     Route: 065
     Dates: start: 20221227, end: 20221227
  33. FLUOROURACIL [Suspect]
     Active Substance: FLUOROURACIL
     Indication: Colon cancer
     Dosage: 1470 MILLIGRAM
     Route: 065
     Dates: start: 20221212, end: 20221213
  34. FLUOROURACIL [Suspect]
     Active Substance: FLUOROURACIL
     Indication: Colon cancer
     Dosage: 490 MILLIGRAM
     Route: 065
     Dates: start: 20221212, end: 20221212
  35. FLUOROURACIL [Suspect]
     Active Substance: FLUOROURACIL
     Indication: Colon cancer
     Dosage: 1062 MILLIGRAM
     Route: 065
     Dates: start: 20221227, end: 20221228
  36. FLUOROURACIL [Suspect]
     Active Substance: FLUOROURACIL
     Indication: Colon cancer
     Dosage: 354 MILLIGRAM
     Route: 065
     Dates: start: 20221227, end: 20221227
  37. PIROXICAM [Suspect]
     Active Substance: PIROXICAM
     Indication: Cancer pain
     Dosage: 240 MILLIGRAM
     Route: 065
     Dates: start: 20221228
  38. PIROXICAM [Suspect]
     Active Substance: PIROXICAM
     Indication: Cancer pain
     Dosage: 96 MILLIGRAM
     Route: 065
     Dates: start: 20221216
  39. BEVACIZUMAB [Suspect]
     Active Substance: BEVACIZUMAB
     Indication: Colorectal cancer metastatic
     Dosage: 388 MILLIGRAM
     Route: 042
     Dates: start: 20221227, end: 20221227
  40. BEVACIZUMAB [Suspect]
     Active Substance: BEVACIZUMAB
     Indication: Colorectal cancer metastatic
     Dosage: 330 MILLIGRAM
     Route: 042
     Dates: start: 20221212, end: 20221212
  41. BENZYDAMINE HYDROCHLORIDE [Suspect]
     Active Substance: BENZYDAMINE HYDROCHLORIDE
     Indication: Prophylaxis
     Dosage: 15 MILLILITER
     Route: 065
     Dates: start: 20221219
  42. NICARDIPINE HYDROCHLORIDE [Suspect]
     Active Substance: NICARDIPINE HYDROCHLORIDE
     Indication: Hypertension
     Dosage: 2 MILLIGRAM
     Route: 065
     Dates: start: 20221216, end: 20221217
  43. ALBUMIN HUMAN [Suspect]
     Active Substance: ALBUMIN HUMAN
     Indication: Hypoalbuminaemia
     Dosage: 100 MILLILITER
     Route: 065
     Dates: start: 20221220, end: 20221221
  44. DEXAMETHASONE SODIUM PHOSPHATE [Suspect]
     Active Substance: DEXAMETHASONE PHOSPHATE\DEXAMETHASONE SODIUM PHOSPHATE
     Indication: Prophylaxis
     Dosage: 8 MILLIGRAM
     Route: 065
     Dates: start: 20221228, end: 20221229
  45. DEXAMETHASONE SODIUM PHOSPHATE [Suspect]
     Active Substance: DEXAMETHASONE PHOSPHATE\DEXAMETHASONE SODIUM PHOSPHATE
     Indication: Prophylaxis
     Dosage: 10 MILLIGRAM
     Route: 065
     Dates: start: 20221212, end: 20221212
  46. DEXAMETHASONE SODIUM PHOSPHATE [Suspect]
     Active Substance: DEXAMETHASONE PHOSPHATE\DEXAMETHASONE SODIUM PHOSPHATE
     Indication: Prophylaxis
     Dosage: 10 MILLIGRAM
     Route: 065
     Dates: start: 20221227, end: 20221227
  47. DEXAMETHASONE SODIUM PHOSPHATE [Suspect]
     Active Substance: DEXAMETHASONE PHOSPHATE\DEXAMETHASONE SODIUM PHOSPHATE
     Indication: Prophylaxis
     Dosage: 8 MILLIGRAM
     Route: 065
     Dates: start: 20221213, end: 20221214

REACTIONS (1)
  - Pneumonia [Recovered/Resolved with Sequelae]

NARRATIVE: CASE EVENT DATE: 20221229
